FAERS Safety Report 9829292 (Version 3)
Quarter: 2014Q1

REPORT INFORMATION
  Report Type: Spontaneous
  Country: US (occurrence: US)
  Receive Date: 20140120
  Receipt Date: 20140312
  Transmission Date: 20141002
  Serious: Yes (Hospitalization, Disabling, Other)
  Sender: FDA-Public Use
  Company Number: US-MERCK-1401USA006521

PATIENT
  Age: 84 Year
  Sex: Male
  Weight: 78.2 kg

DRUGS (5)
  1. REMERON [Suspect]
     Indication: DEPRESSION
     Dosage: 15 MG / DAILY IN THE EVENING
     Route: 048
     Dates: start: 20140108, end: 20140112
  2. REMERON [Suspect]
     Indication: APPETITE DISORDER
  3. REMERON [Suspect]
     Indication: ANXIETY
  4. METHADONE HYDROCHLORIDE [Concomitant]
     Indication: MUSCULOSKELETAL DISCOMFORT
  5. ANALGESIC (UNSPECIFIED) [Concomitant]

REACTIONS (9)
  - Mental status changes [Recovered/Resolved]
  - Myocardial infarction [Recovered/Resolved]
  - Atelectasis [Unknown]
  - Coronary artery disease [Unknown]
  - Hypertension [Unknown]
  - Hyperlipidaemia [Unknown]
  - Gastrooesophageal reflux disease [Unknown]
  - Nausea [Unknown]
  - Atrioventricular block first degree [Unknown]
